FAERS Safety Report 17439047 (Version 3)
Quarter: 2020Q1

REPORT INFORMATION
  Report Type: Report from Study
  Country: IT (occurrence: IT)
  Receive Date: 20200220
  Receipt Date: 20200312
  Transmission Date: 20200409
  Serious: Yes (Other)
  Sender: FDA-Public Use
  Company Number: IT-ROCHE-2548319

PATIENT
  Age: 51 Year
  Sex: Female

DRUGS (4)
  1. LIORESAL [Concomitant]
     Active Substance: BACLOFEN
     Indication: MUSCLE SPASTICITY
     Dosage: 2 TABLETS A DAY, ONGOING
     Route: 048
     Dates: start: 20110125
  2. OCRELIZUMAB. [Suspect]
     Active Substance: OCRELIZUMAB
     Indication: PROGRESSIVE MULTIPLE SCLEROSIS
     Dosage: ONGOING
     Route: 065
     Dates: start: 20180416
  3. SEREUPIN [Concomitant]
     Active Substance: PAROXETINE HYDROCHLORIDE
     Indication: DEPRESSION
     Dosage: 1 TABLET A DAY, ONGOING
     Route: 048
     Dates: start: 20130430
  4. LYRICA [Concomitant]
     Active Substance: PREGABALIN
     Dosage: 2 TABLETS A DAY, ONGOING
     Route: 048
     Dates: start: 20130430

REACTIONS (2)
  - Vaginal infection [Recovered/Resolved]
  - Urinary tract infection [Recovered/Resolved]

NARRATIVE: CASE EVENT DATE: 20200125
